FAERS Safety Report 14478986 (Version 9)
Quarter: 2019Q1

REPORT INFORMATION
  Report Type: Spontaneous
  Country: CA (occurrence: CA)
  Receive Date: 20180202
  Receipt Date: 20190121
  Transmission Date: 20190417
  Serious: Yes (Hospitalization, Other)
  Sender: FDA-Public Use
  Company Number: CA-ROCHE-2066104

PATIENT
  Age: 59 Year
  Sex: Female

DRUGS (10)
  1. XOLAIR [Suspect]
     Active Substance: OMALIZUMAB
     Route: 058
     Dates: start: 20180823
  2. XOLAIR [Suspect]
     Active Substance: OMALIZUMAB
     Route: 058
     Dates: start: 20180419
  3. XOLAIR [Suspect]
     Active Substance: OMALIZUMAB
     Dosage: (RECEIVED 1 DAY EARLY)
     Route: 058
     Dates: start: 20180614
  4. XOLAIR [Suspect]
     Active Substance: OMALIZUMAB
     Dosage: 300 MG, BIW
     Route: 058
     Dates: start: 20180419
  5. XOLAIR [Suspect]
     Active Substance: OMALIZUMAB
     Indication: ASTHMA
     Route: 058
     Dates: start: 20080618
  6. XOLAIR [Suspect]
     Active Substance: OMALIZUMAB
     Route: 058
     Dates: start: 20181128
  7. XOLAIR [Suspect]
     Active Substance: OMALIZUMAB
     Route: 058
     Dates: start: 20180606
  8. XOLAIR [Suspect]
     Active Substance: OMALIZUMAB
     Indication: ASTHMA
     Route: 058
     Dates: start: 20180111
  9. XOLAIR [Suspect]
     Active Substance: OMALIZUMAB
     Dosage: UNK
     Route: 058
     Dates: start: 20180125
  10. XOLAIR [Suspect]
     Active Substance: OMALIZUMAB
     Dosage: UNK
     Route: 058
     Dates: start: 20180307

REACTIONS (16)
  - Fall [Unknown]
  - Pyrexia [Unknown]
  - Pain [Unknown]
  - Pulmonary hypertension [Unknown]
  - Hand fracture [Recovering/Resolving]
  - Dyspnoea [Unknown]
  - Upper limb fracture [Unknown]
  - Inappropriate schedule of product administration [Unknown]
  - Blood iron decreased [Unknown]
  - Fatigue [Unknown]
  - Toothache [Unknown]
  - Infection [Unknown]
  - Wrist fracture [Recovering/Resolving]
  - Dizziness [Unknown]
  - Loss of consciousness [Unknown]
  - Pneumonia [Unknown]

NARRATIVE: CASE EVENT DATE: 20180117
